FAERS Safety Report 5282455-6 (Version None)
Quarter: 2007Q1

REPORT INFORMATION
  Report Type: 
  Country: None (occurrence: None)
  Receive Date: 20070326
  Receipt Date: 20070309
  Transmission Date: 20070707
  Serious: Yes (Hospitalization)
  Sender: FDA-Public Use
  Company Number: 233408

PATIENT
  Age: 77 Year
  Sex: Female
  Weight: 53.5 kg

DRUGS (9)
  1. RANIBIZUMAB (RANIBIZUMAB) PWDR + SOLVENT, INJECTION SOLN [Suspect]
     Indication: CHOROIDAL NEOVASCULARISATION
     Dosage: INTRAVITREAL
     Dates: start: 20050623
  2. ACTONEL [Concomitant]
  3. ASPIRIN [Concomitant]
  4. CALCIUM/VITAMIN D (CALCIUM NOS, CHOLECALCIFEROL) [Concomitant]
  5. COZAAR [Concomitant]
  6. FUROSEMIDE [Concomitant]
  7. POTASSIUM (POTASSIUM NOS) [Concomitant]
  8. SYNTHROID [Concomitant]
  9. ZOCOR [Concomitant]

REACTIONS (5)
  - CONTUSION [None]
  - FALL [None]
  - FEMUR FRACTURE [None]
  - HIP FRACTURE [None]
  - ROAD TRAFFIC ACCIDENT [None]
